FAERS Safety Report 9743197 (Version 1)
Quarter: 2013Q4

REPORT INFORMATION
  Report Type: Spontaneous
  Country: US (occurrence: US)
  Receive Date: 20131210
  Receipt Date: 20131210
  Transmission Date: 20140711
  Serious: Yes (Other)
  Sender: FDA-Public Use
  Company Number: US-GILEAD-2009-0025007

PATIENT
  Age: 70 Year
  Sex: Male

DRUGS (12)
  1. LETAIRIS [Suspect]
     Indication: PULMONARY ARTERIAL HYPERTENSION
     Route: 048
     Dates: start: 20090924
  2. WARFARIN [Concomitant]
  3. FUROSEMIDE [Concomitant]
  4. SPIRONOLACTONE [Concomitant]
  5. BABY ASPIRIN [Concomitant]
  6. CARVEDILOL [Concomitant]
  7. COZZAR [Concomitant]
  8. ZOLOFT [Concomitant]
  9. LOPERAMIDE [Concomitant]
  10. VALTREX [Concomitant]
  11. CHOLESTYRAM POW [Concomitant]
  12. PRILOSEC [Concomitant]

REACTIONS (2)
  - Drug ineffective [Unknown]
  - Anaemia [Unknown]
